FAERS Safety Report 4334693-4 (Version None)
Quarter: 2004Q2

REPORT INFORMATION
  Report Type: 
  Country: None (occurrence: None)
  Receive Date: 20040407
  Receipt Date: 20040407
  Transmission Date: 20050107
  Serious: Yes (Life-Threatening, Hospitalization)
  Sender: FDA-Public Use
  Company Number: None

PATIENT
  Age: 67 Year
  Sex: Female
  Weight: 79.3795 kg

DRUGS (1)
  1. NOVOLIN R [Suspect]
     Indication: HYPERGLYCAEMIA
     Dosage: 5 UNITS X 1 SQ
     Route: 058
     Dates: start: 20040309, end: 20040309

REACTIONS (1)
  - MEDICATION ERROR [None]
